FAERS Safety Report 19163951 (Version 1)
Quarter: 2021Q2

REPORT INFORMATION
  Report Type: Spontaneous
  Country: US (occurrence: US)
  Receive Date: 20210420
  Receipt Date: 20210420
  Transmission Date: 20210717
  Serious: No
  Sender: FDA-Public Use
  Company Number: None

PATIENT
  Age: 41 Year
  Sex: Female
  Weight: 52.16 kg

DRUGS (2)
  1. HIZENTRA [Suspect]
     Active Substance: HUMAN IMMUNOGLOBULIN G
     Indication: HYPOGAMMAGLOBULINAEMIA
     Dosage: ?          OTHER FREQUENCY:Q WEEK;?
     Route: 058
     Dates: start: 20210406, end: 20210409
  2. JOHNSON + JOHNSON COVID?19 VACCINE [Concomitant]
     Dates: start: 20210407, end: 20210407

REACTIONS (3)
  - Malaise [None]
  - Fatigue [None]
  - Urticaria [None]

NARRATIVE: CASE EVENT DATE: 20210409
